FAERS Safety Report 13824180 (Version 4)
Quarter: 2023Q2

REPORT INFORMATION
  Report Type: Spontaneous
  Country: US (occurrence: None)
  Receive Date: 20170802
  Receipt Date: 20230629
  Transmission Date: 20230721
  Serious: Yes (Life-Threatening, Other)
  Sender: FDA-Public Use
  Company Number: 2017SE78104

PATIENT
  Age: 61 Year
  Sex: Female
  Weight: 78.5 kg

DRUGS (33)
  1. NEXIUM [Suspect]
     Active Substance: ESOMEPRAZOLE MAGNESIUM
     Indication: Gastric pH decreased
     Route: 048
     Dates: start: 2008, end: 2009
  2. NEXIUM [Suspect]
     Active Substance: ESOMEPRAZOLE MAGNESIUM
     Indication: Gastric pH decreased
     Route: 048
     Dates: start: 2008, end: 2013
  3. PRILOSEC [Suspect]
     Active Substance: OMEPRAZOLE MAGNESIUM
     Indication: Gastric pH decreased
     Route: 048
  4. PRILOSEC OTC [Suspect]
     Active Substance: OMEPRAZOLE MAGNESIUM
     Indication: Gastric pH decreased
     Route: 048
  5. ATACAND [Concomitant]
     Active Substance: CANDESARTAN CILEXETIL
     Indication: Renal disorder
  6. LASIX [Concomitant]
     Active Substance: FUROSEMIDE
  7. LYRICA [Concomitant]
     Active Substance: PREGABALIN
     Indication: Fibromyalgia
  8. LIPITOR [Concomitant]
     Active Substance: ATORVASTATIN CALCIUM
  9. COREG [Concomitant]
     Active Substance: CARVEDILOL
     Indication: Hypertension
  10. HYDRALAZINE [Concomitant]
     Active Substance: HYDRALAZINE HYDROCHLORIDE
  11. HYDROCODONE [Concomitant]
     Active Substance: HYDROCODONE
     Indication: Pain
  12. CIMETIDINE [Concomitant]
     Active Substance: CIMETIDINE
     Dates: start: 2008
  13. ROLAIDS [Concomitant]
     Active Substance: CALCIUM CARBONATE\MAGNESIUM HYDROXIDE
  14. TUMS [Concomitant]
     Active Substance: CALCIUM CARBONATE
  15. ALLOPURINOL [Concomitant]
     Active Substance: ALLOPURINOL
  16. FUROSEMIDE [Concomitant]
     Active Substance: FUROSEMIDE
  17. ONDANSETRON [Concomitant]
     Active Substance: ONDANSETRON
  18. PREDNISONE [Concomitant]
     Active Substance: PREDNISONE
  19. DOXYCYCLINE [Concomitant]
     Active Substance: DOXYCYCLINE
  20. BENZONATATE [Concomitant]
     Active Substance: BENZONATATE
  21. METHYLPREDNISOLONE [Concomitant]
     Active Substance: METHYLPREDNISOLONE
  22. GABAPENTIN [Concomitant]
     Active Substance: GABAPENTIN
  23. ATORVASTATIN [Concomitant]
     Active Substance: ATORVASTATIN
  24. SIMVASTATIN [Concomitant]
     Active Substance: SIMVASTATIN
  25. TRAMADOL [Concomitant]
     Active Substance: TRAMADOL
  26. GEMFIBROZIL [Concomitant]
     Active Substance: GEMFIBROZIL
  27. LISINOPRIL [Concomitant]
     Active Substance: LISINOPRIL
  28. CLONIDINE [Concomitant]
     Active Substance: CLONIDINE
  29. BUMETANIDE [Concomitant]
     Active Substance: BUMETANIDE
  30. DIAZEPAM [Concomitant]
     Active Substance: DIAZEPAM
  31. TORSEMIDE [Concomitant]
     Active Substance: TORSEMIDE
  32. PROMETHAZINE [Concomitant]
     Active Substance: PROMETHAZINE HYDROCHLORIDE
  33. AMLODIPINE [Concomitant]
     Active Substance: AMLODIPINE BESYLATE

REACTIONS (11)
  - Renal impairment [Unknown]
  - Acute kidney injury [Unknown]
  - Chronic kidney disease [Not Recovered/Not Resolved]
  - Renal failure [Unknown]
  - End stage renal disease [Unknown]
  - Tubulointerstitial nephritis [Unknown]
  - Glomerulonephritis membranous [Unknown]
  - Hypertension [Not Recovered/Not Resolved]
  - Peripheral swelling [Unknown]
  - Nausea [Unknown]
  - Rebound acid hypersecretion [Unknown]

NARRATIVE: CASE EVENT DATE: 20120101
